FAERS Safety Report 16466995 (Version 1)
Quarter: 2019Q2

REPORT INFORMATION
  Report Type: Spontaneous
  Country: US (occurrence: US)
  Receive Date: 20190624
  Receipt Date: 20190624
  Transmission Date: 20190711
  Serious: No
  Sender: FDA-Public Use
  Company Number: US-AMGEN-USASP2019096523

PATIENT
  Age: 58 Year
  Sex: Male

DRUGS (4)
  1. DEXILANT [Concomitant]
     Active Substance: DEXLANSOPRAZOLE
     Indication: ABDOMINAL DISCOMFORT
     Dosage: QD
  2. REPATHA [Suspect]
     Active Substance: EVOLOCUMAB
     Indication: BLOOD CHOLESTEROL INCREASED
     Dosage: 140 MILLIGRAM, Q2WK
     Route: 065
     Dates: start: 2017
  3. VERAPAMIL [Concomitant]
     Active Substance: VERAPAMIL HYDROCHLORIDE
     Dosage: QD
  4. ATIVAN [Concomitant]
     Active Substance: LORAZEPAM
     Dosage: 1 MILLIGRAM, 2 OR 3 TIMES DAILY

REACTIONS (1)
  - Blood potassium increased [Not Recovered/Not Resolved]

NARRATIVE: CASE EVENT DATE: 201906
